FAERS Safety Report 10020111 (Version 2)
Quarter: 2014Q2

REPORT INFORMATION
  Report Type: Spontaneous
  Country: DE (occurrence: DE)
  Receive Date: 20140319
  Receipt Date: 20140410
  Transmission Date: 20141212
  Serious: Yes (Hospitalization, Disabling)
  Sender: FDA-Public Use
  Company Number: DE-ROCHE-1365969

PATIENT
  Age: 47 Year
  Sex: Female
  Weight: 53 kg

DRUGS (7)
  1. KADCYLA [Suspect]
     Indication: BREAST CANCER METASTATIC
     Route: 042
     Dates: start: 20140306, end: 20140306
  2. DEXAMETHASONE [Concomitant]
     Indication: PREMEDICATION
     Dosage: 8 MG IN THE MORNING, 4 MG IN THE EVENING
     Route: 048
     Dates: start: 20140306, end: 20140306
  3. NAVELBINE [Concomitant]
     Indication: BREAST CANCER METASTATIC
     Route: 048
     Dates: start: 201304, end: 201311
  4. NAVELBINE [Concomitant]
     Dosage: 4 CYCLES
     Route: 042
     Dates: start: 201311
  5. XGEVA [Concomitant]
     Indication: BREAST CANCER METASTATIC
     Route: 065
     Dates: start: 201207
  6. HERCEPTIN [Concomitant]
     Indication: BREAST CANCER
     Route: 065
     Dates: start: 200609, end: 200709
  7. HERCEPTIN [Concomitant]
     Route: 065
     Dates: start: 201108

REACTIONS (1)
  - Cardiac failure [Not Recovered/Not Resolved]
